FAERS Safety Report 24354772 (Version 1)
Quarter: 2024Q3

REPORT INFORMATION
  Report Type: Spontaneous
  Country: US (occurrence: US)
  Receive Date: 20240923
  Receipt Date: 20240923
  Transmission Date: 20241016
  Serious: No
  Sender: TEVA
  Company Number: US-TEVA-VS-3242498

PATIENT

DRUGS (1)
  1. TRIAMTERENE [Suspect]
     Active Substance: TRIAMTERENE
     Indication: Hypertension
     Dosage: 37.5/HCTZ25MG
     Route: 065
     Dates: end: 20240112

REACTIONS (5)
  - Abdominal distension [Unknown]
  - Muscle spasms [Unknown]
  - Product substitution issue [Unknown]
  - Diarrhoea [Unknown]
  - Therapeutic response changed [Unknown]
